FAERS Safety Report 16425939 (Version 7)
Quarter: 2020Q4

REPORT INFORMATION
  Report Type: Report from Study
  Country: US (occurrence: US)
  Receive Date: 20190613
  Receipt Date: 20201017
  Transmission Date: 20210113
  Serious: Yes (Death, Life-Threatening, Other)
  Sender: FDA-Public Use
  Company Number: PHEH2019US024739

PATIENT
  Sex: Female
  Weight: 95.1 kg

DRUGS (6)
  1. FLUDARABINE [Concomitant]
     Active Substance: FLUDARABINE PHOSPHATE
     Indication: PRODUCT USED FOR UNKNOWN INDICATION
     Dosage: UNK
     Route: 065
  2. METHYLPREDNISOLONE. [Concomitant]
     Active Substance: METHYLPREDNISOLONE
     Indication: CYTOKINE RELEASE SYNDROME
     Dosage: 97 MG, BID
     Route: 042
     Dates: start: 20190608
  3. KYMRIAH [Suspect]
     Active Substance: TISAGENLECLEUCEL
     Indication: LYMPHOCYTIC LEUKAEMIA
  4. TOCILIZUMAB. [Concomitant]
     Active Substance: TOCILIZUMAB
     Indication: CYTOKINE RELEASE SYNDROME
     Dosage: 800 MG, UNK
     Route: 042
     Dates: start: 20190608
  5. KYMRIAH [Suspect]
     Active Substance: TISAGENLECLEUCEL
     Indication: ACUTE LYMPHOCYTIC LEUKAEMIA
     Dosage: 0.6 KG, ONCE/SINGLE (2.1X10^8)
     Route: 065
     Dates: start: 20190603, end: 20190603
  6. CYCLOPHOSPHAMIDE. [Concomitant]
     Active Substance: CYCLOPHOSPHAMIDE
     Indication: PRODUCT USED FOR UNKNOWN INDICATION
     Dosage: UNK
     Route: 065

REACTIONS (19)
  - Cytopenia [Not Recovered/Not Resolved]
  - Disorientation [Unknown]
  - Encephalopathy [Unknown]
  - Pulse absent [Unknown]
  - Treatment failure [Unknown]
  - Cardiac arrest [Fatal]
  - Thrombocytopenia [Not Recovered/Not Resolved]
  - Cytokine release syndrome [Recovered/Resolved]
  - Haematocrit decreased [Unknown]
  - Hypogammaglobulinaemia [Unknown]
  - Neurological symptom [Unknown]
  - Lethargy [Unknown]
  - Aphasia [Unknown]
  - Acute lymphocytic leukaemia [Fatal]
  - Hypotension [Recovered/Resolved]
  - White blood cell count decreased [Unknown]
  - Neurotoxicity [Unknown]
  - Neutropenia [Not Recovered/Not Resolved]
  - Pyrexia [Unknown]
